FAERS Safety Report 12332692 (Version 1)
Quarter: 2016Q2

REPORT INFORMATION
  Report Type: Report from Study
  Country: US (occurrence: US)
  Receive Date: 20160504
  Receipt Date: 20160504
  Transmission Date: 20160815
  Serious: No
  Sender: FDA-Public Use
  Company Number: GXBR2016US001338

PATIENT
  Sex: Female

DRUGS (1)
  1. OMNITROPE [Suspect]
     Active Substance: SOMATROPIN
     Indication: GROWTH HORMONE DEFICIENCY
     Dosage: 0.5 MG, QD
     Route: 065
     Dates: start: 20160408

REACTIONS (4)
  - Injection site bruising [Not Recovered/Not Resolved]
  - Fear of injection [Unknown]
  - Injection site injury [Not Recovered/Not Resolved]
  - Injection site pain [Unknown]
